FAERS Safety Report 8379040-6 (Version None)
Quarter: 2012Q2

REPORT INFORMATION
  Report Type: 
  Country: None (occurrence: None)
  Receive Date: 20120522
  Receipt Date: 20120522
  Transmission Date: 20120825
  Serious: No
  Sender: FDA-Public Use
  Company Number: None

PATIENT
  Age: 49 Year
  Sex: Female

DRUGS (1)
  1. XELODA [Suspect]
     Indication: BREAST CANCER MALE
     Dosage: 1500 MG BID X 7 DAYS PO
     Route: 048
     Dates: start: 20120424

REACTIONS (4)
  - PIGMENTATION DISORDER [None]
  - ABDOMINAL PAIN UPPER [None]
  - DRY SKIN [None]
  - BOWEL MOVEMENT IRREGULARITY [None]
